FAERS Safety Report 14869136 (Version 1)
Quarter: 2018Q2

REPORT INFORMATION
  Report Type: Spontaneous
  Country: US (occurrence: US)
  Receive Date: 20180509
  Receipt Date: 20180509
  Transmission Date: 20180711
  Serious: No
  Sender: FDA-Public Use
  Company Number: US-BAYER-2018-087710

PATIENT
  Age: 87 Year
  Sex: Female
  Weight: 60 kg

DRUGS (8)
  1. BUMETANIDE. [Concomitant]
     Active Substance: BUMETANIDE
     Dosage: 2 DF, QD
  2. CARVEDILOL. [Concomitant]
     Active Substance: CARVEDILOL
     Dosage: 2 DF, QD
  3. PANTOPRAZOLE [Concomitant]
     Active Substance: PANTOPRAZOLE
     Dosage: 40 MG, UNK
  4. ATORVASTATIN CALCIUM. [Concomitant]
     Active Substance: ATORVASTATIN CALCIUM
     Dosage: 40 MG, QD
  5. ARMOUR THYROID [Concomitant]
     Active Substance: THYROID, PORCINE
     Dosage: 1 DF, QD BEFORE BREAKFAST
  6. POTASSIUM [POTASSIUM CHLORIDE] [Concomitant]
     Dosage: 2 DF, QD
  7. CALCITRIOL. [Concomitant]
     Active Substance: CALCITRIOL
     Dosage: 25 MG, UNK
  8. MIRALAX [Suspect]
     Active Substance: POLYETHYLENE GLYCOL 3350
     Dosage: 1 DF, UNK
     Route: 048

REACTIONS (1)
  - Diarrhoea [Unknown]
